FAERS Safety Report 16791177 (Version 1)
Quarter: 2019Q3

REPORT INFORMATION
  Report Type: Spontaneous
  Country: CN (occurrence: CN)
  Receive Date: 20190910
  Receipt Date: 20190910
  Transmission Date: 20191005
  Serious: Yes (Other)
  Sender: FDA-Public Use
  Company Number: CN-PFIZER INC-2019387344

PATIENT
  Age: 87 Year
  Sex: Female
  Weight: 42 kg

DRUGS (1)
  1. LIPITOR [Suspect]
     Active Substance: ATORVASTATIN CALCIUM
     Indication: CEREBRAL INFARCTION
     Dosage: 20 MG, 1X/DAY
     Route: 045
     Dates: start: 20190623, end: 20190706

REACTIONS (8)
  - Vomiting [Recovered/Resolved]
  - Off label use [Unknown]
  - Abdominal pain [Unknown]
  - Abdominal tenderness [Unknown]
  - Hepatic function abnormal [Recovered/Resolved]
  - Nausea [Recovered/Resolved]
  - Chest pain [Unknown]
  - Product use issue [Unknown]

NARRATIVE: CASE EVENT DATE: 20190705
